FAERS Safety Report 8855513 (Version 2)
Quarter: 2013Q3

REPORT INFORMATION
  Report Type: Spontaneous
  Country: US (occurrence: US)
  Receive Date: 20121023
  Receipt Date: 20130930
  Transmission Date: 20140515
  Serious: No
  Sender: FDA-Public Use
  Company Number: US-AMGEN-USASP2012059095

PATIENT
  Age: 79 Year
  Sex: Female

DRUGS (4)
  1. ENBREL [Suspect]
     Indication: RHEUMATOID ARTHRITIS
     Dosage: 50 MG, QWK
     Dates: start: 20120606
  2. NIACIN [Concomitant]
     Dosage: UNK
  3. METHOTREXATE [Concomitant]
     Dosage: UNK
  4. PREDNISONE                         /00044702/ [Concomitant]
     Dosage: UNK

REACTIONS (2)
  - Hot flush [Recovered/Resolved]
  - Pruritus [Recovered/Resolved]
